FAERS Safety Report 22320643 (Version 2)
Quarter: 2024Q1

REPORT INFORMATION
  Report Type: Report from Study
  Country: NL (occurrence: NL)
  Receive Date: 20230515
  Receipt Date: 20240119
  Transmission Date: 20240410
  Serious: Yes (Death, Other)
  Sender: FDA-Public Use
  Company Number: NL-VER-202300047

PATIENT
  Age: 84 Year
  Sex: Male

DRUGS (5)
  1. TRIPTORELIN PAMOATE [Suspect]
     Active Substance: TRIPTORELIN PAMOATE
     Indication: Prostate cancer
     Dosage: (22.5 MG)
     Route: 065
     Dates: start: 20210601, end: 20210601
  2. TRIPTORELIN PAMOATE [Suspect]
     Active Substance: TRIPTORELIN PAMOATE
     Indication: Prostate cancer
     Dosage: (22.5 MG)
     Route: 065
     Dates: start: 20231027, end: 20231027
  3. TRIPTORELIN PAMOATE [Suspect]
     Active Substance: TRIPTORELIN PAMOATE
     Indication: Prostate cancer
     Dosage: 22.5 MILLIGRAM AT A FREQUENCY OF EVERY 24 WEEKS, SOLV 2ML, SUSPENSION FOR INJECTION,
     Route: 030
     Dates: start: 20221116, end: 20221116
  4. TRIPTORELIN PAMOATE [Suspect]
     Active Substance: TRIPTORELIN PAMOATE
     Indication: Prostate cancer
     Dosage: 22.5 MILLIGRAM AT AN UNKNOWN FREQUENCY, SOLV 2ML, SUSPENSION FOR INJECTION
     Route: 065
     Dates: start: 20230502, end: 20230502
  5. TRIPTORELIN PAMOATE [Suspect]
     Active Substance: TRIPTORELIN PAMOATE
     Indication: Prostate cancer
     Dosage: OTHER USED BATCH NUMBERS WERE  U05301, W28127 AND EXPIRY DATES WERE FEB-2023, JAN-2025 RESPECTIVELY.
     Route: 030

REACTIONS (2)
  - Death [Fatal]
  - Cholelithiasis [Recovering/Resolving]

NARRATIVE: CASE EVENT DATE: 20231210
